FAERS Safety Report 6635946-7 (Version None)
Quarter: 2010Q1

REPORT INFORMATION
  Report Type: 
  Country: None (occurrence: None)
  Receive Date: 20100225
  Receipt Date: 20090406
  Transmission Date: 20100710
  Serious: Yes (Other)
  Sender: FDA-Public Use
  Company Number: US-JNJFOC-20090402399

PATIENT
  Sex: Female

DRUGS (1)
  1. IBUPROFEN [Suspect]
     Indication: DRUG USE FOR UNKNOWN INDICATION

REACTIONS (1)
  - GASTROINTESTINAL ULCER [None]
